FAERS Safety Report 10450172 (Version 2)
Quarter: 2014Q3

REPORT INFORMATION
  Report Type: Spontaneous
  Country: US (occurrence: US)
  Receive Date: 20140912
  Receipt Date: 20140912
  Transmission Date: 20150326
  Serious: Yes (Other)
  Sender: FDA-Public Use
  Company Number: US-PFIZER INC-2010004192

PATIENT
  Sex: Female

DRUGS (2)
  1. SYNTHROID [Concomitant]
     Active Substance: LEVOTHYROXINE SODIUM
     Indication: THYROID DISORDER
     Dosage: 75 MG DAILY
     Route: 048
     Dates: start: 2000
  2. GEODON [Suspect]
     Active Substance: ZIPRASIDONE HYDROCHLORIDE\ZIPRASIDONE MESYLATE
     Indication: INSOMNIA
     Dosage: 60 MG, 1X/DAY
     Route: 048
     Dates: start: 200906

REACTIONS (10)
  - Pre-existing condition improved [Unknown]
  - Dizziness [Not Recovered/Not Resolved]
  - Blood glucose abnormal [Unknown]
  - Therapeutic response changed [Unknown]
  - Hypersomnia [Not Recovered/Not Resolved]
  - Diabetes mellitus [Unknown]
  - Thermal burn [Not Recovered/Not Resolved]
  - Increased appetite [Not Recovered/Not Resolved]
  - Weight increased [Not Recovered/Not Resolved]
  - Diabetic neuropathy [Recovered/Resolved]

NARRATIVE: CASE EVENT DATE: 200906
